FAERS Safety Report 5024911-1 (Version None)
Quarter: 2006Q2

REPORT INFORMATION
  Report Type: 
  Country: None (occurrence: None)
  Receive Date: 20060607
  Receipt Date: 20060522
  Transmission Date: 20061013
  Serious: Yes (Other)
  Sender: FDA-Public Use
  Company Number: DSA_28237_2006

PATIENT
  Age: 35 Year
  Sex: Female
  Weight: 51 kg

DRUGS (2)
  1. LORAX [Suspect]
     Dosage: 40 MG ONCE PO
     Route: 048
     Dates: start: 20060521, end: 20060521
  2. LORAX [Suspect]
     Indication: INSOMNIA
     Dosage: 2 MG Q DAY PO
     Route: 048
     Dates: start: 19960101

REACTIONS (3)
  - COORDINATION ABNORMAL [None]
  - INTENTIONAL OVERDOSE [None]
  - SOMNOLENCE [None]
